FAERS Safety Report 10063947 (Version 1)
Quarter: 2014Q2

REPORT INFORMATION
  Report Type: Spontaneous
  Country: US (occurrence: US)
  Receive Date: 20140408
  Receipt Date: 20140408
  Transmission Date: 20141212
  Serious: No
  Sender: FDA-Public Use
  Company Number: US-BIOGENIDEC-2014BI032401

PATIENT
  Sex: Male

DRUGS (13)
  1. TYSABRI [Suspect]
     Indication: MULTIPLE SCLEROSIS
     Route: 042
  2. XANAX [Concomitant]
  3. VISTARIL [Concomitant]
  4. NEURONTIN [Concomitant]
  5. PRAZOSIN [Concomitant]
  6. HYDROCHLOROTHIAZIDE [Concomitant]
  7. BYSTOLIC [Concomitant]
  8. MIRAPEX [Concomitant]
  9. ZANAFLEX [Concomitant]
  10. NORCO [Concomitant]
  11. PRILOSEC [Concomitant]
  12. FISH OIL [Concomitant]
  13. EPIPEN [Concomitant]

REACTIONS (1)
  - Hypersensitivity [Unknown]
